FAERS Safety Report 10263606 (Version 3)
Quarter: 2014Q4

REPORT INFORMATION
  Report Type: Report from Study
  Country: US (occurrence: US)
  Receive Date: 20140626
  Receipt Date: 20141226
  Transmission Date: 20150528
  Serious: Yes (Hospitalization)
  Sender: FDA-Public Use
  Company Number: PHHY2013US061431

PATIENT
  Sex: Male
  Weight: 4.82 kg

DRUGS (20)
  1. RHUMAB-E25 [Suspect]
     Active Substance: OMALIZUMAB
     Indication: URTICARIA
     Dosage: UNK
     Route: 064
     Dates: start: 20120919
  2. RHUMAB-E25 [Suspect]
     Active Substance: OMALIZUMAB
     Dosage: UNK
     Route: 064
     Dates: start: 20130123
  3. RHUMAB-E25 [Suspect]
     Active Substance: OMALIZUMAB
     Dosage: MATERNAL DOSE : 225 MG, 1 IN 2 M
     Route: 063
     Dates: start: 20131204
  4. RHUMAB-E25 [Suspect]
     Active Substance: OMALIZUMAB
     Dosage: MATERNAL DOSE : 225 MG, 1 IN 2 M
     Route: 063
     Dates: start: 20140122
  5. VITAMIN D [Concomitant]
     Active Substance: CHOLECALCIFEROL
     Indication: PRODUCT USED FOR UNKNOWN INDICATION
     Dosage: UNK
     Route: 065
  6. POLIOVIRUS VACCINE, INACTIVATED [Concomitant]
     Indication: IMMUNISATION
     Route: 065
  7. MUMPS VACCINE [Concomitant]
     Active Substance: MUMPS VIRUS STRAIN B LEVEL JERYL LYNN LIVE ANTIGEN
     Indication: IMMUNISATION
     Route: 065
  8. RHUMAB-E25 [Suspect]
     Active Substance: OMALIZUMAB
     Dosage: MATERNAL DOSE : 225 MG, 1 IN 2 M
     Route: 063
     Dates: start: 20140319
  9. HAEMOPHILUS INFLUENZA TYPE B VACCINE [Concomitant]
     Active Substance: HAEMOPHILUS INFLUENZAE TYPE B
     Indication: IMMUNISATION
     Route: 065
  10. DIPHTHERIA [Concomitant]
     Indication: IMMUNISATION
     Route: 065
  11. VARICELLA [Concomitant]
     Indication: IMMUNISATION
     Route: 065
  12. TETANUS [Concomitant]
     Active Substance: UNSPECIFIED INGREDIENT
     Indication: IMMUNISATION
     Route: 065
  13. RHUMAB-E25 [Suspect]
     Active Substance: OMALIZUMAB
     Dosage: MATERNAL DOSE : 225 MG, 1 IN 2 M
     Route: 063
     Dates: start: 20131016
  14. MEASLES [Concomitant]
     Indication: IMMUNISATION
     Route: 065
  15. RHUMAB-E25 [Suspect]
     Active Substance: OMALIZUMAB
     Dosage: UNK
     Route: 064
     Dates: start: 20121017
  16. RHUMAB-E25 [Suspect]
     Active Substance: OMALIZUMAB
     Dosage: UNK
     Route: 064
     Dates: start: 20130410
  17. RHUMAB-E25 [Suspect]
     Active Substance: OMALIZUMAB
     Dosage: MATERNAL DOSE : 225 MG, 1 IN 2 M
     Route: 063
     Dates: start: 20130619
  18. RHUMAB-E25 [Suspect]
     Active Substance: OMALIZUMAB
     Dosage: MATERNAL DOSE : 225 MG, 1 IN 2 M
     Route: 063
     Dates: start: 20130821
  19. PERTUSSIS [Concomitant]
     Indication: IMMUNISATION
     Route: 065
  20. RUBELLA [Concomitant]
     Active Substance: RUBELLA VIRUS STRAIN WISTAR RA 27/3 LIVE ANTIGEN
     Indication: IMMUNISATION
     Route: 065

REACTIONS (8)
  - Candida infection [Unknown]
  - Dermatitis diaper [Unknown]
  - Miliaria [Unknown]
  - Viral infection [Unknown]
  - Foetal heart rate deceleration abnormality [Recovered/Resolved]
  - Foetal exposure during pregnancy [Unknown]
  - Exposure during breast feeding [Unknown]
  - Dacryostenosis acquired [Unknown]

NARRATIVE: CASE EVENT DATE: 20130530
